FAERS Safety Report 6625160-3 (Version None)
Quarter: 2010Q1

REPORT INFORMATION
  Report Type: 
  Country: None (occurrence: None)
  Receive Date: 20100310
  Receipt Date: 20090901
  Transmission Date: 20100710
  Serious: No
  Sender: FDA-Public Use
  Company Number: US-BIOGENIDEC-2009BI028427

PATIENT
  Age: 36 Year
  Sex: Female

DRUGS (1)
  1. AVONEX [Suspect]
     Indication: MULTIPLE SCLEROSIS
     Route: 030
     Dates: start: 20070929

REACTIONS (7)
  - ANKLE FRACTURE [None]
  - BALANCE DISORDER [None]
  - EYE PAIN [None]
  - FALL [None]
  - NERVOUS SYSTEM DISORDER [None]
  - TREMOR [None]
  - VISION BLURRED [None]
